FAERS Safety Report 6319948-6 (Version None)
Quarter: 2009Q3

REPORT INFORMATION
  Report Type: 
  Country: None (occurrence: None)
  Receive Date: 20090822
  Receipt Date: 20081014
  Transmission Date: 20100115
  Serious: No
  Sender: FDA-Public Use
  Company Number: US-ABBOTT-08P-163-0481566-00

PATIENT
  Sex: Female

DRUGS (5)
  1. NIASPAN [Suspect]
     Indication: DRUG USE FOR UNKNOWN INDICATION
     Route: 048
     Dates: start: 20060928, end: 20061120
  2. NIASPAN [Suspect]
     Route: 048
     Dates: start: 20061120, end: 20070111
  3. NIASPAN [Suspect]
     Route: 048
     Dates: start: 20070111, end: 20070321
  4. NIASPAN [Suspect]
     Route: 048
     Dates: start: 20070321, end: 20081008
  5. NIASPAN [Suspect]
     Route: 048
     Dates: start: 20081008

REACTIONS (2)
  - ERYTHEMA [None]
  - FLUSHING [None]
